FAERS Safety Report 7610808-7 (Version None)
Quarter: 2011Q3

REPORT INFORMATION
  Report Type: 
  Country: None (occurrence: None)
  Receive Date: 20110715
  Receipt Date: 20110709
  Transmission Date: 20111222
  Serious: Yes (Hospitalization)
  Sender: FDA-Public Use
  Company Number: PHHO2011AR11853

PATIENT
  Sex: Male
  Weight: 74 kg

DRUGS (4)
  1. BLINDED NVA237 [Suspect]
     Dosage: DOUBLE BLIND TREATMENT PERIOD
     Dates: start: 20110212
  2. BLINDED TIOTROPIUM [Suspect]
     Dosage: DOUBLE BLIND TREATMENT PERIOD
     Dates: start: 20110212
  3. BLINDED QVA149 [Suspect]
     Dosage: DOUBLE BLIND TREATMENT PERIOD
     Dates: start: 20110212
  4. BLINDED NO TREATMENT RECEIVED [Suspect]
     Dosage: DOUBLE BLIND TREATMENT PERIOD
     Dates: start: 20110212

REACTIONS (1)
  - CHRONIC OBSTRUCTIVE PULMONARY DISEASE [None]
